FAERS Safety Report 5089865-0 (Version None)
Quarter: 2006Q3

REPORT INFORMATION
  Report Type: 
  Country: None (occurrence: None)
  Receive Date: 20060727
  Receipt Date: 20060515
  Transmission Date: 20061208
  Serious: Yes (Other)
  Sender: FDA-Public Use
  Company Number: 2006065320

PATIENT
  Age: 45 Year
  Sex: Female

DRUGS (2)
  1. LYRICA [Suspect]
     Indication: HEADACHE
     Dosage: UNKNOWN
     Route: 065
  2. SUCRALFATE [Concomitant]

REACTIONS (4)
  - ABDOMINAL DISTENSION [None]
  - DIZZINESS [None]
  - INCREASED APPETITE [None]
  - VAGINAL DISCHARGE [None]
